FAERS Safety Report 7025554-0 (Version None)
Quarter: 2010Q4

REPORT INFORMATION
  Report Type: 
  Country: None (occurrence: None)
  Receive Date: 20101003
  Receipt Date: 20100923
  Transmission Date: 20110411
  Serious: Yes (Hospitalization)
  Sender: FDA-Public Use
  Company Number: PHHO2010DE14476

PATIENT
  Sex: Female

DRUGS (1)
  1. TASIGNA [Suspect]
     Indication: CHRONIC MYELOID LEUKAEMIA
     Dosage: 150 MG, BID
     Route: 048

REACTIONS (3)
  - ANAEMIA [None]
  - FAILURE TO THRIVE [None]
  - MEDICATION ERROR [None]
